FAERS Safety Report 5125885-5 (Version None)
Quarter: 2006Q4

REPORT INFORMATION
  Report Type: 
  Country: None (occurrence: None)
  Receive Date: 20061012
  Receipt Date: 20060906
  Transmission Date: 20070319
  Serious: Yes (Hospitalization)
  Sender: FDA-Public Use
  Company Number: CH-GLAXOSMITHKLINE-B0437624A

PATIENT
  Age: 55 Year
  Sex: Female

DRUGS (15)
  1. DARAPRIM [Suspect]
     Indication: CEREBRAL TOXOPLASMOSIS
     Dosage: 25MG THREE TIMES PER DAY
     Route: 048
     Dates: start: 20060724
  2. SULFADIAZIN [Suspect]
     Indication: CEREBRAL TOXOPLASMOSIS
     Dosage: 1.5G FOUR TIMES PER DAY
     Route: 048
     Dates: start: 20060724
  3. DEPAKENE [Concomitant]
     Dosage: 900MG FOUR TIMES PER DAY
  4. BELOC [Concomitant]
     Dosage: 50MG PER DAY
     Route: 048
  5. UNKNOWN MEDICATION [Concomitant]
     Dosage: 50MG PER DAY
  6. PERENTEROL [Concomitant]
     Dosage: 500MG FOUR TIMES PER DAY
     Route: 048
  7. VITAMINES [Concomitant]
  8. KALETRA [Concomitant]
     Route: 048
     Dates: start: 20060823
  9. LAMIVUDINE [Concomitant]
     Dosage: 150MG TWICE PER DAY
     Route: 048
     Dates: start: 20060823
  10. ZANTIC [Concomitant]
     Dosage: 1TAB TWICE PER DAY
     Route: 048
  11. FRAGMIN [Concomitant]
     Dosage: 5000UNIT PER DAY
     Route: 058
  12. NOZINAN [Concomitant]
     Dosage: 25MG THREE TIMES PER DAY
     Route: 048
  13. NORVASC [Concomitant]
     Dosage: 5MG AS REQUIRED
     Route: 048
  14. LEUCOVORIN CALCIUM [Concomitant]
     Dosage: 15MG PER DAY
     Route: 048
  15. CLINDAMYCIN [Concomitant]
     Route: 048
     Dates: start: 20060701, end: 20060701

REACTIONS (1)
  - DRUG INEFFECTIVE [None]
